FAERS Safety Report 13987660 (Version 1)
Quarter: 2017Q3

REPORT INFORMATION
  Report Type: Spontaneous
  Country: US (occurrence: US)
  Receive Date: 20170919
  Receipt Date: 20170919
  Transmission Date: 20171128
  Serious: Yes (Hospitalization)
  Sender: FDA-Public Use
  Company Number: US-PFIZER INC-2017273910

PATIENT
  Sex: Male

DRUGS (13)
  1. XANAX [Concomitant]
     Active Substance: ALPRAZOLAM
     Indication: CARDIAC DISORDER
     Dosage: 2MG, ONCE A DAY
  2. TRAZODONE [Concomitant]
     Active Substance: TRAZODONE HYDROCHLORIDE
     Indication: SLEEP DISORDER
     Dosage: 100 MG, UNK
  3. METOPROLOL. [Concomitant]
     Active Substance: METOPROLOL
     Indication: BLOOD PRESSURE ABNORMAL
     Dosage: 50 MG, UNK
  4. PREPARATION H SUPPOSITORY [Suspect]
     Active Substance: COCOA BUTTER\PHENYLEPHRINE HYDROCHLORIDE
     Indication: HAEMORRHOIDS
     Dosage: ONE SUPPOSITORY, UP THE RECTUM, USES ONE IN MORNING AND ONE IT AT NIGHT AT LEAST
     Route: 054
  5. PREPARATION H SUPPOSITORY [Suspect]
     Active Substance: COCOA BUTTER\PHENYLEPHRINE HYDROCHLORIDE
     Indication: POLYP
     Dosage: 2 TO 3 TIMES A DAY
     Dates: start: 1984
  6. PREPARATION H SUPPOSITORY [Suspect]
     Active Substance: COCOA BUTTER\PHENYLEPHRINE HYDROCHLORIDE
     Indication: BURNING SENSATION
  7. TRAZODONE [Concomitant]
     Active Substance: TRAZODONE HYDROCHLORIDE
     Indication: NIGHTMARE
  8. RANITIDINE. [Concomitant]
     Active Substance: RANITIDINE
     Indication: GASTRIC DISORDER
     Dosage: 300 MG, 2X/DAY
     Route: 048
  9. PREPARATION H NOS [Suspect]
     Active Substance: COCOA BUTTER\PETROLATUM\PHENYLEPHRINE HYDROCHLORIDE\PHENYLEPHRINE HYDROCHLORIDE OR MINERAL OIL
     Indication: BURNING SENSATION
     Dosage: 2 TO 3 TIMES A DAY
     Dates: start: 1984
  10. ASPIRIN. [Concomitant]
     Active Substance: ASPIRIN
     Indication: BLOOD DISORDER
     Dosage: 81MG, ONE IN THE MORNING AND ONE AT NIGHT
  11. PREPARATION H NOS [Suspect]
     Active Substance: COCOA BUTTER\PETROLATUM\PHENYLEPHRINE HYDROCHLORIDE\PHENYLEPHRINE HYDROCHLORIDE OR MINERAL OIL
     Indication: HAEMORRHOIDS
     Dosage: PLACES SOME CREAM ON END OF SUPPOSITORY, ONCE IN THE MORNING AND ONCE AT NIGHT AT LEAST
     Route: 054
  12. LISINOPRIL HCTZ [Concomitant]
     Active Substance: HYDROCHLOROTHIAZIDE\LISINOPRIL
     Indication: BLOOD PRESSURE ABNORMAL
     Dosage: [HYDROCHLOROTHIAZIDE 12.5MG]/[LISINOPRIL 20MG] ONE TABLET BY MOUTH, TWICE DAILY
     Route: 048
  13. LISINOPRIL HCTZ [Concomitant]
     Active Substance: HYDROCHLOROTHIAZIDE\LISINOPRIL
     Indication: FLUID RETENTION

REACTIONS (10)
  - Ear infection [Unknown]
  - Burning sensation [Unknown]
  - Nerve injury [Not Recovered/Not Resolved]
  - Drug ineffective [Unknown]
  - Intentional product misuse [Unknown]
  - Intestinal polyp [Unknown]
  - Pain [Not Recovered/Not Resolved]
  - Hypoacusis [Unknown]
  - Gastric polyps [Unknown]
  - Ear pain [Unknown]
